FAERS Safety Report 7305092-8 (Version None)
Quarter: 2011Q1

REPORT INFORMATION
  Report Type: 
  Country: None (occurrence: None)
  Receive Date: 20110222
  Receipt Date: 20110209
  Transmission Date: 20110831
  Serious: Yes (Hospitalization, Disabling, Other)
  Sender: FDA-Public Use
  Company Number: FR-ACTELION-A-CH2008-23047

PATIENT
  Sex: Female
  Weight: 71 kg

DRUGS (9)
  1. TRACLEER [Suspect]
     Indication: SKIN ULCER
     Dosage: 125 MG, BID
     Route: 048
     Dates: start: 20080422, end: 20080501
  2. DILTIAZEM HCL [Concomitant]
     Dosage: 60 MG, BID
     Dates: start: 20080301
  3. PROSTACYCLIN [Concomitant]
  4. IMUREL [Concomitant]
     Dosage: 50 MG, QD
     Dates: start: 20050601
  5. TRACLEER [Suspect]
     Dosage: 62.5 MG, BID
     Route: 048
     Dates: start: 20080301, end: 20080421
  6. COLCHICINE [Suspect]
     Dates: end: 20081010
  7. GLUCOCORTICOIDS [Concomitant]
     Dosage: 1 MG/KG, DAY
  8. RAMIPRIL [Concomitant]
  9. INIPOMP [Concomitant]

REACTIONS (14)
  - PERIPHERAL MOTOR NEUROPATHY [None]
  - VASCULITIS [None]
  - DRUG INEFFECTIVE [None]
  - TOXICITY TO VARIOUS AGENTS [None]
  - PAIN IN EXTREMITY [None]
  - BIOPSY [None]
  - OEDEMA PERIPHERAL [None]
  - PARAESTHESIA [None]
  - BURNING SENSATION [None]
  - NEURALGIA [None]
  - ELECTROMYOGRAM ABNORMAL [None]
  - SKIN ULCER [None]
  - DRUG INTERACTION [None]
  - MYOSITIS [None]
